FAERS Safety Report 4470475-0 (Version None)
Quarter: 2004Q4

REPORT INFORMATION
  Report Type: 
  Country: None (occurrence: None)
  Receive Date: 20041005
  Receipt Date: 20040921
  Transmission Date: 20050328
  Serious: Yes (Death)
  Sender: FDA-Public Use
  Company Number: 2004235137GB

PATIENT
  Sex: 0

DRUGS (4)
  1. CELEBREX [Suspect]
     Indication: RHEUMATOID ARTHRITIS
     Dosage: 200 MG , QD, ORAL
     Route: 048
     Dates: end: 20040301
  2. SULFASALAZINE [Suspect]
     Indication: RHEUMATOID ARTHRITIS
     Dosage: 1 G, QD, ORAL
     Route: 048
     Dates: end: 20040301
  3. PREDNISOLONE [Concomitant]
  4. FOLIC ACID [Concomitant]

REACTIONS (2)
  - DRUG EXPOSURE DURING PREGNANCY [None]
  - TRISOMY 21 [None]
